FAERS Safety Report 11431162 (Version 1)
Quarter: 2015Q3

REPORT INFORMATION
  Report Type: Spontaneous
  Country: NL (occurrence: NL)
  Receive Date: 20150828
  Receipt Date: 20150828
  Transmission Date: 20151125
  Serious: Yes (Other)
  Sender: FDA-Public Use
  Company Number: NL-BANPHARM-20154148

PATIENT
  Age: 57 Year
  Sex: Male

DRUGS (4)
  1. EMTRICITABINE [Concomitant]
     Active Substance: EMTRICITABINE
     Dosage: DF 200MG,
  2. IBUPROFEN UNKNOWN PRODUCT [Interacting]
     Active Substance: IBUPROFEN
     Indication: TOOTH EXTRACTION
     Dosage: DF 600MG, TID,
  3. TENOFOVIR DISOPROXIL-FUMARATE (TDF) [Suspect]
     Active Substance: TENOFOVIR DISOPROXIL FUMARATE
     Indication: HIV INFECTION
     Dosage: DF 245MG,
  4. RILPIVIRINE [Concomitant]
     Active Substance: RILPIVIRINE
     Dosage: DF 25MG,

REACTIONS (1)
  - Renal tubular disorder [Recovered/Resolved]
